FAERS Safety Report 6208986-X (Version None)
Quarter: 2009Q2

REPORT INFORMATION
  Report Type: 
  Country: None (occurrence: None)
  Receive Date: 20090529
  Receipt Date: 20090518
  Transmission Date: 20091009
  Serious: Yes (Other)
  Sender: FDA-Public Use
  Company Number: PHHY2009NL19403

PATIENT
  Sex: Female

DRUGS (3)
  1. PAMIDRONATE DISODIUM [Suspect]
     Indication: OSTEOPOROSIS POSTMENOPAUSAL
     Dosage: UNK
     Route: 048
     Dates: start: 19920801, end: 20061201
  2. PAMIDRONATE DISODIUM [Suspect]
     Route: 042
  3. VITAMIN D [Concomitant]
     Dosage: 400-800 IU/DAY

REACTIONS (1)
  - FEMUR FRACTURE [None]
